FAERS Safety Report 7476917-0 (Version None)
Quarter: 2011Q2

REPORT INFORMATION
  Report Type: 
  Country: None (occurrence: None)
  Receive Date: 20110512
  Receipt Date: 20110506
  Transmission Date: 20111010
  Serious: Yes (Hospitalization)
  Sender: FDA-Public Use
  Company Number: FR-BAXTER-2011BH015425

PATIENT
  Age: 88 Year
  Sex: Female

DRUGS (1)
  1. CYCLOPHOSPHAMIDE [Suspect]
     Indication: LYMPHOMA
     Route: 048
     Dates: start: 20110117, end: 20110127

REACTIONS (3)
  - CARDIAC FIBRILLATION [None]
  - DYSPNOEA [None]
  - ATRIAL TACHYCARDIA [None]
